FAERS Safety Report 15587607 (Version 1)
Quarter: 2018Q4

REPORT INFORMATION
  Report Type: Spontaneous
  Country: US (occurrence: US)
  Receive Date: 20181105
  Receipt Date: 20181105
  Transmission Date: 20190205
  Serious: Yes (Disabling, Other)
  Sender: FDA-Public Use
  Company Number: None

PATIENT
  Age: 91 Year
  Sex: Female
  Weight: 47.17 kg

DRUGS (23)
  1. PROBIOTIC [Concomitant]
     Active Substance: PROBIOTICS NOS
  2. OMEGA 3 [Concomitant]
     Active Substance: OMEGA-3 FATTY ACIDS
  3. VITAMIN A AND D [Concomitant]
     Active Substance: LANOLIN\PETROLATUM
  4. MAGNESIUM [Concomitant]
     Active Substance: MAGNESIUM
  5. FLUPHENAZINE [Concomitant]
     Active Substance: FLUPHENAZINE
  6. FERGON [Concomitant]
     Active Substance: FERROUS GLUCONATE
  7. SPIRIVA [Concomitant]
     Active Substance: TIOTROPIUM BROMIDE MONOHYDRATE
  8. VIT B5 [Concomitant]
  9. BABY ASPIRIN [Concomitant]
     Active Substance: ASPIRIN
  10. DOXYCYCLINE HYCLATE 100MG TAB [Suspect]
     Active Substance: DOXYCYCLINE HYCLATE
     Indication: UPPER RESPIRATORY TRACT INFECTION
     Dosage: ?          QUANTITY:3 DAY REGIME;OTHER FREQUENCY:1 TAB AM/ 1 TAB PM;?
     Route: 048
     Dates: start: 20181001, end: 20181003
  11. OMEPRAZOLE. [Concomitant]
     Active Substance: OMEPRAZOLE
  12. SYSTANE ULTRA [Concomitant]
     Active Substance: POLYETHYLENE GLYCOL 400\PROPYLENE GLYCOL
  13. OLANZAPINE. [Concomitant]
     Active Substance: OLANZAPINE
  14. ZINC. [Concomitant]
     Active Substance: ZINC
  15. VIT B-12 [Concomitant]
  16. VITAMIN B COMPLEX [Concomitant]
     Active Substance: CYANOCOBALAMIN\DEXPANTHENOL\NIACINAMIDE\PYRIDOXINE HYDROCHLORIDE\RIBOFLAVIN 5^-PHOSPHATE SODIUM\THIAMINE HYDROCHLORIDE\VITAMIN B COMPLEX
  17. METOPROLOL. [Concomitant]
     Active Substance: METOPROLOL
  18. CENTRUM SILVER [Concomitant]
     Active Substance: MINERALS\VITAMINS
  19. VITAMIN B6 [Concomitant]
     Active Substance: PYRIDOXINE HYDROCHLORIDE
  20. CALCIUM [Concomitant]
     Active Substance: CALCIUM
  21. COQ10 [Concomitant]
     Active Substance: UBIDECARENONE
  22. CALCIUM LACTATE [Concomitant]
     Active Substance: CALCIUM LACTATE
  23. VITAMIN E [Concomitant]
     Active Substance: .ALPHA.-TOCOPHEROL

REACTIONS (2)
  - Dysuria [None]
  - Urinary retention [None]

NARRATIVE: CASE EVENT DATE: 20181003
